FAERS Safety Report 8407687 (Version 4)
Quarter: 2012Q4

REPORT INFORMATION
  Report Type: Report from Study
  Country: JP (occurrence: JP)
  Receive Date: 20120215
  Receipt Date: 20121210
  Transmission Date: 20130627
  Serious: Yes (Hospitalization)
  Sender: FDA-Public Use
  Company Number: JP-JNJFOC-20120205313

PATIENT
  Age: 71 Year
  Sex: Female
  Weight: 56 kg

DRUGS (20)
  1. SIMPONI [Suspect]
     Indication: RHEUMATOID ARTHRITIS
     Route: 058
     Dates: start: 20111227
  2. SIMPONI [Suspect]
     Indication: RHEUMATOID ARTHRITIS
     Route: 058
     Dates: start: 20120124
  3. SIMPONI [Suspect]
     Indication: RHEUMATOID ARTHRITIS
     Route: 058
     Dates: start: 20120319
  4. SIMPONI [Suspect]
     Indication: RHEUMATOID ARTHRITIS
     Route: 058
     Dates: start: 20120417
  5. SIMPONI [Suspect]
     Indication: RHEUMATOID ARTHRITIS
     Route: 058
     Dates: start: 20111129
  6. SIMPONI [Suspect]
     Indication: RHEUMATOID ARTHRITIS
     Route: 058
     Dates: start: 20111101
  7. SIMPONI [Suspect]
     Indication: RHEUMATOID ARTHRITIS
     Route: 058
     Dates: start: 20120220
  8. METHOTREXATE [Suspect]
     Indication: PRODUCT USED FOR UNKNOWN INDICATION
     Route: 048
     Dates: start: 201108, end: 20111205
  9. METHOTREXATE [Suspect]
     Indication: PRODUCT USED FOR UNKNOWN INDICATION
     Route: 048
     Dates: start: 20111229
  10. MOBIC [Concomitant]
     Indication: RHEUMATOID ARTHRITIS
     Route: 048
  11. FOLIAMIN [Concomitant]
     Indication: PROPHYLAXIS
     Route: 048
     Dates: end: 20111203
  12. SOFALCONE [Concomitant]
     Route: 048
  13. TANATRIL [Concomitant]
     Route: 048
  14. TAKEPRON [Concomitant]
     Route: 048
  15. FERO-GRADUMET [Concomitant]
     Route: 048
  16. METHYCOBAL [Concomitant]
     Indication: ARTERIAL OCCLUSIVE DISEASE
     Route: 048
  17. NEUTROGIN [Concomitant]
     Indication: ARTERIAL OCCLUSIVE DISEASE
     Route: 048
  18. DORNER [Concomitant]
     Route: 048
  19. LIPITOR [Concomitant]
     Route: 048
  20. SENNARIDE [Concomitant]
     Route: 048

REACTIONS (1)
  - Bronchopneumonia [Recovered/Resolved]
